FAERS Safety Report 9609439 (Version 1)
Quarter: 2013Q4

REPORT INFORMATION
  Report Type: Report from Study
  Country: TW (occurrence: TW)
  Receive Date: 20131009
  Receipt Date: 20131009
  Transmission Date: 20140711
  Serious: No
  Sender: FDA-Public Use
  Company Number: PHHY2012TW078630

PATIENT
  Age: 47 Year
  Sex: Female

DRUGS (38)
  1. AMN107 [Suspect]
  2. LEVOCETIRIZINE [Concomitant]
     Indication: PRURITUS
     Dosage: UNK
     Dates: start: 20101124, end: 20110713
  3. LEVOCETIRIZINE [Concomitant]
     Dosage: UNK
     Dates: start: 20110713, end: 20111122
  4. LEVOCETIRIZINE [Concomitant]
     Dosage: UNK
     Dates: start: 20110921, end: 20120223
  5. ACETAMINOPHEN [Concomitant]
     Indication: BONE PAIN
     Dosage: UNK
     Dates: start: 20101124, end: 20101223
  6. ACETAMINOPHEN [Concomitant]
     Indication: PAIN IN EXTREMITY
     Dosage: UNK
     Dates: start: 20110309, end: 20110413
  7. ACETAMINOPHEN [Concomitant]
     Indication: HEADACHE
     Dosage: UNK
     Dates: start: 20110615, end: 20110713
  8. ACETAMINOPHEN [Concomitant]
     Indication: PYREXIA
     Dosage: UNK
     Dates: start: 20120223, end: 20120321
  9. ACETAMINOPHEN [Concomitant]
     Dosage: UNK
     Dates: start: 20120523, end: 20120602
  10. ACETAMINOPHEN [Concomitant]
     Dosage: UNK
     Dates: start: 20120711
  11. AMARIDE [Concomitant]
     Indication: DIABETES MELLITUS
     Dosage: UNK
     Dates: end: 201112
  12. ANSURES [Concomitant]
     Indication: DIABETES MELLITUS
     Dates: end: 201112
  13. NEO-CORTISONE [Concomitant]
     Indication: PRURITUS
     Dosage: UNK
     Dates: start: 20110105, end: 20110511
  14. NEO-CORTISONE [Concomitant]
     Indication: RASH
     Dosage: UNK
     Dates: start: 20111116
  15. FUROSEMIDE [Concomitant]
     Indication: PROPHYLAXIS
     Dosage: UNK
     Dates: start: 20110209, end: 20110209
  16. FUROSEMIDE [Concomitant]
     Indication: OEDEMA PERIPHERAL
     Dosage: UNK
     Dates: start: 20110413, end: 20110413
  17. FUROSEMIDE [Concomitant]
     Indication: TRANSFUSION
     Dosage: UNK
     Dates: start: 20110713
  18. FUROSEMIDE [Concomitant]
     Dosage: UNK
     Dates: start: 20110810, end: 20110810
  19. FUROSEMIDE [Concomitant]
     Dosage: UNK
     Dates: start: 20110824, end: 20110824
  20. FUROSEMIDE [Concomitant]
     Dosage: UNK
     Dates: start: 20110921, end: 20110921
  21. FUROSEMIDE [Concomitant]
     Dosage: UNK
     Dates: start: 20111116, end: 20111116
  22. SENNOSIDE A+B CALCIUM [Concomitant]
     Indication: CONSTIPATION
     Dosage: UNK
     Dates: start: 20110413, end: 20110810
  23. SENNOSIDE A+B CALCIUM [Concomitant]
     Dosage: UNK
     Dates: start: 20120613
  24. METFORMIN [Concomitant]
     Indication: DIABETES MELLITUS
     Dosage: UNK
     Dates: start: 20111207, end: 20111215
  25. METFORMIN [Concomitant]
     Dosage: UNK
     Dates: start: 201112
  26. CEFUROXIME [Concomitant]
     Indication: ESCHERICHIA SEPSIS
     Dosage: UNK
     Dates: start: 20120528, end: 20120531
  27. CLINDAMYCIN PHOSPHATE [Concomitant]
     Indication: ESCHERICHIA SEPSIS
     Dosage: UNK
     Dates: start: 20120523, end: 20120527
  28. BISACODYL ACTAVIS [Concomitant]
     Indication: CONSTIPATION
     Dosage: UNK
     Dates: start: 20120525, end: 20120525
  29. MAGNESIUM OXIDE [Concomitant]
     Indication: CONSTIPATION
     Dosage: UNK
     Dates: start: 20120711, end: 20120905
  30. KETOCONAZOL [Concomitant]
     Indication: SKIN LESION
     Dosage: UNK
     Dates: start: 20120711, end: 20120905
  31. BETAMETHASONE/NEOMYCIN [Concomitant]
     Indication: SKIN LESION
     Dosage: UNK
     Dates: start: 20120711, end: 20120905
  32. INSULIN ASPART [Concomitant]
     Indication: DIABETES MELLITUS
     Dosage: UNK
     Dates: start: 20120603
  33. CEFTRIAXONE [Concomitant]
     Indication: ESCHERICHIA SEPSIS
     Dosage: UNK
     Dates: start: 20120523, end: 20120528
  34. INSULIN DETEMIR [Concomitant]
     Indication: DIABETES MELLITUS
     Dosage: 300 UG/ML, UNK
     Dates: start: 20110712, end: 20111215
  35. INSULIN DETEMIR [Concomitant]
     Dosage: UNK
     Dates: start: 20111005, end: 20120524
  36. INSULIN REGULAR HM [Concomitant]
     Indication: DIABETES MELLITUS
     Dosage: UNK
     Dates: start: 20120525, end: 20120602
  37. AMARYL M [Concomitant]
     Indication: DIABETES MELLITUS
     Dosage: UNK
     Dates: start: 20111207, end: 20111215
  38. GLIMEPIRIDE [Concomitant]
     Indication: DIABETES MELLITUS
     Dosage: UNK
     Dates: start: 201112

REACTIONS (3)
  - Rhinorrhoea [Unknown]
  - Cough [Unknown]
  - Headache [Unknown]
